FAERS Safety Report 7484108-2 (Version None)
Quarter: 2011Q2

REPORT INFORMATION
  Report Type: 
  Country: None (occurrence: None)
  Receive Date: 20110517
  Receipt Date: 20090726
  Transmission Date: 20111010
  Serious: Yes (Other)
  Sender: FDA-Public Use
  Company Number: US-BAYER-200928005NA

PATIENT
  Age: 64 Year
  Sex: Female
  Weight: 82 kg

DRUGS (18)
  1. RED BLOOD CELLS [Concomitant]
     Dosage: 2 UNITS
     Route: 042
     Dates: start: 20060822
  2. BUSPAR [Concomitant]
     Dosage: 10MG
     Route: 048
     Dates: start: 19960101
  3. THEOPHYLLINE [Concomitant]
     Dosage: 200MG
     Route: 048
     Dates: start: 19940101, end: 19970101
  4. INSULIN [Concomitant]
     Dosage: 150U
     Route: 042
     Dates: start: 20060822, end: 20060822
  5. COMBIVENT [Concomitant]
     Dosage: UNK
     Route: 045
     Dates: start: 20000101
  6. ACETYLSALICYLIC ACID SRT [Concomitant]
     Dosage: 81MG
     Route: 048
     Dates: start: 20000101
  7. NORVASC [Concomitant]
     Dosage: 5MG
     Route: 048
     Dates: start: 19920101, end: 20060101
  8. IMDUR [Concomitant]
     Dosage: 50MCG
     Route: 048
  9. PLAVIX [Concomitant]
     Dosage: 40MG
     Route: 048
     Dates: start: 20060101
  10. IMDUR [Concomitant]
     Dosage: 50MCG
     Route: 048
  11. LISINOPRIL [Concomitant]
     Dosage: UNK
     Route: 048
  12. METHYLPEDNISOLONE SODIUM SUCCINATE [Concomitant]
     Dosage: 125MG
     Route: 042
     Dates: start: 20060822
  13. TRASYLOL [Suspect]
     Indication: CORONARY ARTERY BYPASS
     Dosage: 200 ML PUMP PRIME DOSE
     Route: 042
     Dates: start: 20060822
  14. TRASYLOL [Suspect]
     Indication: MITRAL VALVE REPAIR
  15. DIGOXIN [Concomitant]
     Dosage: 0.125
     Route: 048
  16. HEPARIN [Concomitant]
     Dosage: 20,000U-100U HR.
     Route: 042
     Dates: start: 20060822
  17. ALBUTEROL [Concomitant]
     Dosage: ALBUTEROL
     Route: 045
     Dates: start: 19960101
  18. OXYGEN [Concomitant]
     Dosage: 2-4L

REACTIONS (11)
  - FEAR [None]
  - RENAL FAILURE [None]
  - RENAL ARTERY STENT PLACEMENT [None]
  - INJURY [None]
  - DEPRESSION [None]
  - ANHEDONIA [None]
  - RESPIRATORY FAILURE [None]
  - PAIN [None]
  - RENAL FAILURE ACUTE [None]
  - ANXIETY [None]
  - UNEVALUABLE EVENT [None]
